FAERS Safety Report 4559111-2 (Version None)
Quarter: 2005Q1

REPORT INFORMATION
  Report Type: 
  Country: None (occurrence: None)
  Receive Date: 20050121
  Receipt Date: 20050121
  Transmission Date: 20050727
  Serious: Yes (Life-Threatening)
  Sender: FDA-Public Use
  Company Number: None

PATIENT
  Age: 58 Year
  Sex: Female
  Weight: 48.0813 kg

DRUGS (5)
  1. COPAXONE [Suspect]
     Indication: MULTIPLE SCLEROSIS
     Dosage: 20 MG   DAILY   SUBCUTANEO
     Route: 058
     Dates: start: 19981210, end: 20050113
  2. AMITRIPTYLINE [Concomitant]
  3. BACLOFEN [Concomitant]
  4. ASACOL [Concomitant]
  5. PREMARIN [Concomitant]

REACTIONS (1)
  - OVARIAN CANCER [None]
